FAERS Safety Report 4298531-0 (Version None)
Quarter: 2004Q1

REPORT INFORMATION
  Report Type: 
  Country: None (occurrence: None)
  Receive Date: 20040218
  Receipt Date: 20040209
  Transmission Date: 20041129
  Serious: Yes (Hospitalization, Other)
  Sender: FDA-Public Use
  Company Number: AU-BRISTOL-MYERS SQUIBB COMPANY-12500179

PATIENT
  Age: 37 Year
  Sex: Male

DRUGS (2)
  1. WARFARIN SODIUM [Suspect]
     Indication: AORTIC VALVE REPLACEMENT
     Dosage: RECEIVED 5MG/DAY; INTENTIONALLY INGESTED 120MG; THERAPY STOPPED + THEN RESTARTED.
     Route: 048
  2. WARFARIN SODIUM [Suspect]
     Indication: MITRAL VALVE REPLACEMENT
     Dosage: RECEIVED 5MG/DAY; INTENTIONALLY INGESTED 120MG; THERAPY STOPPED + THEN RESTARTED.
     Route: 048

REACTIONS (4)
  - COGNITIVE DISORDER [None]
  - DYSARTHRIA [None]
  - INTERNATIONAL NORMALISED RATIO INCREASED [None]
  - OVERDOSE [None]
